FAERS Safety Report 8265436-X (Version None)
Quarter: 2012Q2

REPORT INFORMATION
  Report Type: 
  Country: None (occurrence: None)
  Receive Date: 20120406
  Receipt Date: 20120403
  Transmission Date: 20120825
  Serious: Yes (Hospitalization, Other)
  Sender: FDA-Public Use
  Company Number: US-PFIZER INC-2012024705

PATIENT
  Sex: Female

DRUGS (5)
  1. ALESSE [Concomitant]
     Indication: CONTRACEPTION
     Dosage: UNK
     Dates: start: 20000101
  2. CHANTIX [Suspect]
     Indication: SMOKING CESSATION THERAPY
     Dosage: 0.5 MG/1 MG
     Dates: start: 20080101, end: 20080201
  3. LEXAPRO [Concomitant]
     Indication: DEPRESSION
     Dosage: UNK
     Dates: start: 20060101
  4. ATENOLOL [Concomitant]
     Indication: PALPITATIONS
     Dosage: UNK
     Dates: start: 20040101
  5. LORAZEPAM [Concomitant]
     Indication: ANXIETY
     Dosage: UNK
     Dates: start: 20060101

REACTIONS (8)
  - AGGRESSION [None]
  - ABNORMAL BEHAVIOUR [None]
  - ANGER [None]
  - SUICIDE ATTEMPT [None]
  - DEPRESSION [None]
  - STRESS [None]
  - ANXIETY [None]
  - AGITATION [None]
